FAERS Safety Report 12293813 (Version 1)
Quarter: 2016Q2

REPORT INFORMATION
  Report Type: Spontaneous
  Country: None (occurrence: SE)
  Receive Date: 20160421
  Receipt Date: 20160421
  Transmission Date: 20160815
  Serious: Yes (Other)
  Sender: FDA-Public Use
  Company Number: SE-POPULATION COUNCIL, INC.-1050862

PATIENT
  Sex: Female

DRUGS (1)
  1. NORPLANT [Suspect]
     Active Substance: LEVONORGESTREL
     Indication: CONTRACEPTION
     Route: 058

REACTIONS (1)
  - Hypersensitivity [None]
